FAERS Safety Report 6559856-9 (Version None)
Quarter: 2010Q1

REPORT INFORMATION
  Report Type: 
  Country: None (occurrence: None)
  Receive Date: 20100129
  Receipt Date: 20090908
  Transmission Date: 20100710
  Serious: No
  Sender: FDA-Public Use
  Company Number: US-ABBOTT-09P-163-0597450-00

PATIENT
  Sex: Female

DRUGS (2)
  1. HUMIRA [Suspect]
     Indication: CROHN'S DISEASE
     Dosage: 160MG LOADING DOSE; DAY 1
     Dates: start: 20090908, end: 20090908
  2. HUMIRA [Suspect]

REACTIONS (3)
  - HEADACHE [None]
  - MYALGIA [None]
  - PARAESTHESIA [None]
